FAERS Safety Report 12893599 (Version 1)
Quarter: 2016Q4

REPORT INFORMATION
  Report Type: Spontaneous
  Country: CN (occurrence: CN)
  Receive Date: 20161028
  Receipt Date: 20161028
  Transmission Date: 20170207
  Serious: Yes (Hospitalization, Disabling, Other)
  Sender: FDA-Public Use
  Company Number: CN-009507513-1610CHN014160

PATIENT
  Age: 36 Year
  Sex: Female

DRUGS (1)
  1. MARVELON [Suspect]
     Active Substance: DESOGESTREL\ETHINYL ESTRADIOL
     Dosage: UNK
     Route: 048

REACTIONS (5)
  - Deafness unilateral [Unknown]
  - Dizziness [Unknown]
  - Cough [Unknown]
  - Hearing disability [Unknown]
  - Ocular discomfort [Unknown]
